FAERS Safety Report 7511364-4 (Version None)
Quarter: 2011Q2

REPORT INFORMATION
  Report Type: 
  Country: None (occurrence: None)
  Receive Date: 20110531
  Receipt Date: 20110522
  Transmission Date: 20111010
  Serious: Yes (Hospitalization, Other)
  Sender: FDA-Public Use
  Company Number: US-BAYER-201036540NA

PATIENT
  Age: 23 Year
  Sex: Female
  Weight: 61 kg

DRUGS (6)
  1. ORTHO TRI-CYCLEN LO [Concomitant]
     Dosage: UNK
     Dates: start: 20060301, end: 20060501
  2. YASMIN [Suspect]
     Dosage: UNK
     Dates: start: 20040601, end: 20060101
  3. YAZ [Suspect]
     Dosage: UNK
     Dates: start: 20071001, end: 20080801
  4. YASMIN [Suspect]
     Indication: CONTRACEPTION
     Dosage: UNK
     Route: 048
     Dates: start: 20040301
  5. NEXIUM [Concomitant]
  6. PHENERGAN HCL [Concomitant]

REACTIONS (2)
  - CHOLELITHIASIS [None]
  - CHOLECYSTITIS [None]
